FAERS Safety Report 22072357 (Version 2)
Quarter: 2023Q2

REPORT INFORMATION
  Report Type: Spontaneous
  Country: US (occurrence: US)
  Receive Date: 20230308
  Receipt Date: 20230401
  Transmission Date: 20230721
  Serious: Yes (Hospitalization, Other)
  Sender: FDA-Public Use
  Company Number: US-AUROBINDO-AUR-APL-2023-010100

PATIENT
  Age: 12 Year
  Sex: Male

DRUGS (7)
  1. PREDNISONE [Suspect]
     Active Substance: PREDNISONE
     Indication: Lichen planus pemphigoides
     Dosage: 60 MILLIGRAM, ONCE A DAY
     Route: 048
  2. NIVOLUMAB [Concomitant]
     Active Substance: NIVOLUMAB
     Indication: Naevoid melanoma
     Dosage: 3 MILLIGRAM/KILOGRAM  (223MG) EVERY 2 WEEKS
     Route: 065
  3. BETAMETHASONE DIPROPIONATE [Concomitant]
     Active Substance: BETAMETHASONE DIPROPIONATE
     Indication: Lichenoid keratosis
     Dosage: UNK
     Route: 061
  4. TRIAMCINOLONE [Concomitant]
     Active Substance: TRIAMCINOLONE
     Indication: Lichenoid keratosis
     Dosage: UNK
     Route: 065
  5. METHYLPREDNISOLONE [Concomitant]
     Active Substance: METHYLPREDNISOLONE
     Indication: Lichenoid keratosis
     Dosage: 80 MILLIGRAM, ONCE A DAY
     Route: 042
  6. ACITRETIN [Concomitant]
     Active Substance: ACITRETIN
     Indication: Lichenoid keratosis
     Dosage: UNK
     Route: 065
  7. METHOTREXATE [Concomitant]
     Active Substance: METHOTREXATE
     Indication: Lichenoid keratosis
     Dosage: UNK
     Route: 065

REACTIONS (1)
  - Drug ineffective [Unknown]
